FAERS Safety Report 14033019 (Version 5)
Quarter: 2018Q4

REPORT INFORMATION
  Report Type: Spontaneous
  Country: DE (occurrence: DE)
  Receive Date: 20171002
  Receipt Date: 20181004
  Transmission Date: 20190204
  Serious: Yes (Death, Other)
  Sender: FDA-Public Use
  Company Number: DE-PFIZER INC-2017416892

PATIENT
  Age: 33 Year
  Sex: Female

DRUGS (1)
  1. PROPOFOL. [Suspect]
     Active Substance: PROPOFOL
     Indication: DRUG ABUSE
     Dosage: UNK (THREE EMPTY INJECTION BOTTLES)
     Route: 042

REACTIONS (4)
  - Drug use disorder [Fatal]
  - Drug abuse [Fatal]
  - Intentional overdose [Fatal]
  - Toxicity to various agents [Fatal]
